FAERS Safety Report 8158113-7 (Version None)
Quarter: 2012Q1

REPORT INFORMATION
  Report Type: 
  Country: None (occurrence: None)
  Receive Date: 20120222
  Receipt Date: 20120221
  Transmission Date: 20120608
  Serious: Yes (Other)
  Sender: FDA-Public Use
  Company Number: PHHY2012AT006083

PATIENT
  Age: 67 Year
  Sex: Male
  Weight: 76 kg

DRUGS (1)
  1. RASILEZ [Suspect]
     Indication: HYPERTENSION
     Dosage: 300 MG, UNK
     Route: 048
     Dates: start: 20120110, end: 20120113

REACTIONS (1)
  - ERECTILE DYSFUNCTION [None]
